FAERS Safety Report 9183489 (Version 2)
Quarter: 2014Q2

REPORT INFORMATION
  Report Type: Spontaneous
  Country: US (occurrence: US)
  Receive Date: 20121101
  Receipt Date: 20131024
  Transmission Date: 20141212
  Serious: No
  Sender: FDA-Public Use
  Company Number: US-PFIZER INC-2012270023

PATIENT
  Age: 64 Year
  Sex: Female

DRUGS (6)
  1. TETRACYCLINE HCL [Suspect]
     Dosage: UNK
  2. VANCOMYCIN HCL [Suspect]
  3. ZITHROMAX [Suspect]
  4. CEFTIN [Suspect]
  5. COMPAZINE [Suspect]
  6. KEFLEX [Suspect]

REACTIONS (1)
  - Drug hypersensitivity [Unknown]
